FAERS Safety Report 9023562 (Version 7)
Quarter: 2013Q3

REPORT INFORMATION
  Report Type: Report from Study
  Country: DE (occurrence: DE)
  Receive Date: 20130121
  Receipt Date: 20130809
  Transmission Date: 20140515
  Serious: Yes (Hospitalization)
  Sender: FDA-Public Use
  Company Number: PHHO2013DE001163

PATIENT
  Age: 74 Year
  Sex: Female
  Weight: 87.6 kg

DRUGS (4)
  1. EVEROLIMUS [Suspect]
     Indication: BREAST CANCER METASTATIC
     Dosage: 5 MG, QD
     Route: 048
     Dates: start: 20120927, end: 20130116
  2. EXEMESTANE [Suspect]
     Indication: BREAST CANCER METASTATIC
     Dosage: 25 MG, QD
     Route: 048
     Dates: start: 20120803, end: 20130116
  3. XGEVA [Concomitant]
     Indication: BREAST CANCER
     Dosage: 120 MG, UNK
     Route: 058
     Dates: end: 20130116
  4. ANTIBIOTICS [Concomitant]

REACTIONS (9)
  - Hypotension [Recovered/Resolved]
  - Haemoglobin decreased [Recovered/Resolved]
  - Red blood cell count decreased [Recovered/Resolved]
  - Dyspnoea [Recovering/Resolving]
  - Oedema peripheral [Recovering/Resolving]
  - Anaemia [Recovering/Resolving]
  - Pyrexia [Recovering/Resolving]
  - Dizziness [Recovered/Resolved]
  - Vertigo [Recovered/Resolved]
